FAERS Safety Report 10031429 (Version 1)
Quarter: 2014Q1

REPORT INFORMATION
  Report Type: Report from Study
  Country: US (occurrence: US)
  Receive Date: 20140324
  Receipt Date: 20140324
  Transmission Date: 20141002
  Serious: Yes (Other)
  Sender: FDA-Public Use
  Company Number: US-ROCHE-1364471

PATIENT
  Age: 4 Year
  Sex: Male
  Weight: 17.3 kg

DRUGS (3)
  1. NUTROPIN AQ [Suspect]
     Indication: GROWTH HORMONE DEFICIENCY
     Route: 058
  2. NUTROPIN AQ [Suspect]
     Route: 058
     Dates: start: 201302
  3. NUTROPIN AQ [Suspect]
     Route: 058

REACTIONS (4)
  - Clavicle fracture [Unknown]
  - Growth retardation [Unknown]
  - Insulin-like growth factor decreased [Unknown]
  - Incorrect dose administered [Unknown]
